FAERS Safety Report 9222647 (Version 1)
Quarter: 2013Q1

REPORT INFORMATION
  Report Type: Spontaneous
  Country: BE (occurrence: None)
  Receive Date: 20120914
  Receipt Date: 20120914
  Transmission Date: 20140127
  Serious: Yes (Other)
  Sender: FDA-Public Use
  Company Number: JPI-P-017132

PATIENT
  Age: 40 Year
  Sex: Male

DRUGS (3)
  1. XYREM (500 MILLIGRAM/MILLILITERS, SOLUTION) (SODIUM OXYBATE) [Suspect]
     Indication: CATAPLEXY
     Route: 048
     Dates: start: 20110706, end: 20110712
  2. MODAFINIL [Concomitant]
  3. METHYPHENIDATE HYDROCHLORIDE [Concomitant]

REACTIONS (8)
  - Sleep apnoea syndrome [None]
  - Alcohol use [None]
  - Social avoidant behaviour [None]
  - Cataplexy [None]
  - Condition aggravated [None]
  - Nervousness [None]
  - Aggression [None]
  - Depressed mood [None]
